FAERS Safety Report 23305277 (Version 8)
Quarter: 2024Q3

REPORT INFORMATION
  Report Type: Spontaneous
  Country: US (occurrence: US)
  Receive Date: 20231218
  Receipt Date: 20240902
  Transmission Date: 20241017
  Serious: Yes (Hospitalization, Other)
  Sender: GLAXOSMITHKLINE
  Company Number: US-GLAXOSMITHKLINE-US2023AMR174953

PATIENT

DRUGS (19)
  1. ZEJULA [Suspect]
     Active Substance: NIRAPARIB
     Indication: Ovarian cancer
     Dosage: 200 MG, QD
     Route: 048
     Dates: start: 20231117
  2. ZEJULA [Suspect]
     Active Substance: NIRAPARIB
     Dosage: 200 MG, QD
     Route: 048
     Dates: start: 20231127
  3. ZEJULA [Suspect]
     Active Substance: NIRAPARIB
     Dosage: 200 MG, QD
     Route: 048
  4. FAMOTIDINE [Concomitant]
     Active Substance: FAMOTIDINE
     Indication: Product used for unknown indication
     Dosage: 20 MG
  5. OXYCODONE HYDROCHLORIDE [Concomitant]
     Active Substance: OXYCODONE HYDROCHLORIDE
     Indication: Product used for unknown indication
     Dosage: 5 MG
  6. OXYCODONE HYDROCHLORIDE [Concomitant]
     Active Substance: OXYCODONE HYDROCHLORIDE
     Dosage: 4 MG
  7. MIDODRINE HYDROCHLORIDE [Concomitant]
     Active Substance: MIDODRINE HYDROCHLORIDE
     Indication: Product used for unknown indication
     Dosage: 10 MG
  8. TYLENOL [Concomitant]
     Active Substance: ACETAMINOPHEN
     Indication: Product used for unknown indication
     Dosage: 325 MG
  9. IBUPROFEN [Concomitant]
     Active Substance: IBUPROFEN
     Indication: Product used for unknown indication
     Dosage: 600 MG
  10. VITAMIN D3 [Concomitant]
     Active Substance: CHOLECALCIFEROL
     Indication: Product used for unknown indication
     Dosage: 10 UG
  11. MAGNESIUM [Concomitant]
     Active Substance: MAGNESIUM
     Indication: Product used for unknown indication
     Dosage: 400 MG
  12. VITAMIN C [Concomitant]
     Active Substance: ASCORBIC ACID
     Indication: Product used for unknown indication
     Dosage: 1000 MG
  13. OMEGA 3 [Concomitant]
     Active Substance: CAPSAICIN
     Indication: Product used for unknown indication
     Dosage: 1000 MG
  14. ELIQUIS [Concomitant]
     Active Substance: APIXABAN
     Indication: Product used for unknown indication
     Dosage: 2.5 MG
  15. ONDANSETRON HYDROCHLORIDE [Concomitant]
     Active Substance: ONDANSETRON HYDROCHLORIDE
     Indication: Product used for unknown indication
     Dosage: 4 MG
  16. OMEPRAZOLE [Concomitant]
     Active Substance: OMEPRAZOLE
     Indication: Product used for unknown indication
     Dosage: 20 MG
  17. FERROUS SULFATE [Concomitant]
     Active Substance: FERROUS SULFATE
     Indication: Product used for unknown indication
     Dosage: UNK, 100%GRANULES
  18. COLACE [Concomitant]
     Active Substance: DOCUSATE SODIUM
     Indication: Product used for unknown indication
     Dosage: 100 MG
  19. PANTOPRAZOLE SODIUM [Concomitant]
     Active Substance: PANTOPRAZOLE SODIUM
     Indication: Product used for unknown indication
     Dosage: 20 MG

REACTIONS (14)
  - Hospitalisation [Unknown]
  - Colostomy closure [Unknown]
  - Headache [Not Recovered/Not Resolved]
  - Fatigue [Not Recovered/Not Resolved]
  - Blood magnesium decreased [Not Recovered/Not Resolved]
  - Pain in extremity [Not Recovered/Not Resolved]
  - Abdominal discomfort [Not Recovered/Not Resolved]
  - Dry skin [Recovering/Resolving]
  - Urticaria [Recovering/Resolving]
  - Sensation of foreign body [Recovering/Resolving]
  - Blood test abnormal [Unknown]
  - Skin discolouration [Recovered/Resolved]
  - Anaemia [Recovering/Resolving]
  - Blood disorder [Recovering/Resolving]

NARRATIVE: CASE EVENT DATE: 20240701
